FAERS Safety Report 23616525 (Version 1)
Quarter: 2024Q1

REPORT INFORMATION
  Report Type: Spontaneous
  Country: US (occurrence: None)
  Receive Date: 20240308
  Receipt Date: 20240308
  Transmission Date: 20240410
  Serious: Yes (unspecified)
  Sender: FDA-Public Use
  Company Number: None

PATIENT
  Age: 68 Year
  Sex: Male

DRUGS (14)
  1. ENTECAVIR [Suspect]
     Active Substance: ENTECAVIR
     Dosage: FREQUENCY : DAILY;?
     Route: 048
     Dates: start: 20240301, end: 20240304
  2. VEMLIDY [Suspect]
     Active Substance: TENOFOVIR ALAFENAMIDE FUMARATE
     Dosage: FREQUENCY : DAILY;?
     Route: 048
     Dates: start: 20240301, end: 20240304
  3. OLMESARTAN [Concomitant]
     Active Substance: OLMESARTAN
  4. CARVEDILOL [Concomitant]
     Active Substance: CARVEDILOL
  5. KLOR-CON [Concomitant]
     Active Substance: POTASSIUM CHLORIDE
  6. ASPIRIN [Concomitant]
     Active Substance: ASPIRIN
  7. SIROLIMUS [Concomitant]
     Active Substance: SIROLIMUS
  8. ESCITALOPRAM [Concomitant]
     Active Substance: ESCITALOPRAM OXALATE
  9. ALLOPURINOL [Concomitant]
     Active Substance: ALLOPURINOL
  10. PROBIOTICS NOS [Concomitant]
     Active Substance: PROBIOTICS NOS
  11. FISH OIL\OMEGA-3 FATTY ACIDS [Concomitant]
     Active Substance: FISH OIL\OMEGA-3 FATTY ACIDS
  12. VITAMIN B COMPLEX [Concomitant]
     Active Substance: CYANOCOBALAMIN\DEXPANTHENOL\NIACINAMIDE\PYRIDOXINE HYDROCHLORIDE\RIBOFLAVIN 5^-PHOSPHATE SODIUM\THIA
  13. AMLODIPINE [Concomitant]
     Active Substance: AMLODIPINE BESYLATE
  14. DOCUSATE [Concomitant]
     Active Substance: DOCUSATE

REACTIONS (2)
  - Periorbital swelling [None]
  - Sluggishness [None]

NARRATIVE: CASE EVENT DATE: 20240304
